FAERS Safety Report 9856811 (Version 1)
Quarter: 2014Q1

REPORT INFORMATION
  Report Type: Spontaneous
  Country: US (occurrence: None)
  Receive Date: 20140128
  Receipt Date: 20140128
  Transmission Date: 20141002
  Serious: No
  Sender: FDA-Public Use
  Company Number: 2014P1000426

PATIENT
  Age: 60 Year
  Sex: Male

DRUGS (3)
  1. LORAZEPAM [Suspect]
     Indication: AGGRESSION
     Route: 030
  2. HALOPERIDOL [Suspect]
     Indication: AGGRESSION
     Route: 030
  3. KAVA [Suspect]
     Route: 048

REACTIONS (3)
  - Depressed level of consciousness [None]
  - Atrial flutter [None]
  - Hypoxia [None]
